FAERS Safety Report 4288838-5 (Version None)
Quarter: 2004Q1

REPORT INFORMATION
  Report Type: 
  Country: None (occurrence: None)
  Receive Date: 20040206
  Receipt Date: 20040126
  Transmission Date: 20041129
  Serious: No
  Sender: FDA-Public Use
  Company Number: 04P-163-0248628-00

PATIENT
  Age: 71 Year
  Sex: Male
  Weight: 64.4108 kg

DRUGS (11)
  1. HUMIRA [Suspect]
     Indication: RHEUMATOID ARTHRITIS
     Dosage: 40 MG, 1 I 2 WK, SUBCUTANEOUS
     Route: 058
     Dates: start: 20030201
  2. PREDNISONE [Concomitant]
  3. CANDESARTAN CILEXETIL [Concomitant]
  4. FUROSEMIDE [Concomitant]
  5. FINASTERIDE [Concomitant]
  6. EPOGEN [Concomitant]
  7. LANSOPRAZOLE [Concomitant]
  8. ACTOS [Concomitant]
  9. FLOMAX [Concomitant]
  10. MEGESTROL ACETATE [Concomitant]
  11. MULTI-VITAMINS [Concomitant]

REACTIONS (2)
  - DEHYDRATION [None]
  - DIARRHOEA [None]
